FAERS Safety Report 16777633 (Version 1)
Quarter: 2019Q3

REPORT INFORMATION
  Report Type: Report from Study
  Country: IE (occurrence: IE)
  Receive Date: 20190905
  Receipt Date: 20190905
  Transmission Date: 20191005
  Serious: Yes (Other)
  Sender: FDA-Public Use
  Company Number: IE-JNJFOC-20190900455

PATIENT
  Age: 7 Decade
  Sex: Male

DRUGS (9)
  1. ABIRATERONE ACETATE. [Suspect]
     Active Substance: ABIRATERONE ACETATE
     Indication: PROSTATE CANCER
     Route: 048
     Dates: start: 20180907
  2. VALSARTAN. [Concomitant]
     Active Substance: VALSARTAN
     Route: 050
  3. INDAPAMIDE. [Concomitant]
     Active Substance: INDAPAMIDE
     Route: 050
  4. DIFENE [Concomitant]
     Active Substance: DICLOFENAC SODIUM
     Route: 050
  5. CALCICHEW [Concomitant]
     Active Substance: CALCIUM CARBONATE
     Route: 050
  6. NEXIUM [Concomitant]
     Active Substance: ESOMEPRAZOLE MAGNESIUM
     Route: 050
  7. PREDNISOLONE. [Concomitant]
     Active Substance: PREDNISOLONE
     Route: 050
  8. OXYNORM [Concomitant]
     Active Substance: OXYCODONE HYDROCHLORIDE
  9. AZILECT [Concomitant]
     Active Substance: RASAGILINE MESYLATE
     Route: 050

REACTIONS (1)
  - Appendicectomy [Not Recovered/Not Resolved]
